FAERS Safety Report 24055234 (Version 2)
Quarter: 2024Q3

REPORT INFORMATION
  Report Type: Spontaneous
  Country: MY (occurrence: MY)
  Receive Date: 20240705
  Receipt Date: 20240712
  Transmission Date: 20241017
  Serious: Yes (Hospitalization)
  Sender: ELI LILLY AND CO
  Company Number: MY-ELI_LILLY_AND_COMPANY-MY202406019463

PATIENT
  Age: 77 Year
  Sex: Female

DRUGS (1)
  1. FORTEO [Suspect]
     Active Substance: TERIPARATIDE
     Indication: Osteoporosis
     Dosage: UNK, DAILY
     Route: 058

REACTIONS (3)
  - Cerebrovascular accident [Unknown]
  - Back pain [Unknown]
  - Pain in extremity [Unknown]
